FAERS Safety Report 5727844-8 (Version None)
Quarter: 2008Q2

REPORT INFORMATION
  Report Type: 
  Country: None (occurrence: None)
  Receive Date: 20080430
  Receipt Date: 20080421
  Transmission Date: 20081010
  Serious: Yes (Life-Threatening, Hospitalization, Other)
  Sender: FDA-Public Use
  Company Number: 2008-00928

PATIENT
  Age: 65 Year
  Sex: Female
  Weight: 47.1 kg

DRUGS (18)
  1. VELCADE [Suspect]
     Indication: MANTLE CELL LYMPHOMA
     Dosage: 1.3 MG/M2, IV BOLUS
     Route: 040
     Dates: start: 20071109, end: 20080303
  2. ETOPOSIDE [Suspect]
     Indication: MANTLE CELL LYMPHOMA
     Dosage: 102.00 MG, INTRAVENOUS
     Route: 042
     Dates: start: 20071109, end: 20080303
  3. PREDNISONE TAB [Suspect]
     Indication: MANTLE CELL LYMPHOMA
     Dosage: 80.00 MG, ORAL
     Route: 048
     Dates: start: 20071109, end: 20080229
  4. VINCRISTINE [Suspect]
     Indication: MANTLE CELL LYMPHOMA
     Dosage: 0.57 MG, INTRAVENOUS
     Route: 042
     Dates: start: 20071109, end: 20080303
  5. CYCLOPHOSPHAMIDE [Suspect]
     Indication: MANTLE CELL LYMPHOMA
     Dosage: 1530 MG, INTRAVENOUS
     Route: 042
     Dates: start: 20071109, end: 20080304
  6. DOXORUBICIN HCL [Suspect]
     Indication: MANTLE CELL LYMPHOMA
     Dosage: 20.40 MG, INTRAVENOUS
     Route: 042
     Dates: start: 20071109, end: 20080303
  7. RITUXIMAB(RITUXIMAB) INJECTION, 375MG/M2 [Suspect]
     Indication: MANTLE CELL LYMPHOMA
     Dosage: 533 MG, INTRAVENOUS
     Route: 042
     Dates: start: 20071109, end: 20080229
  8. FILGRASTIM [Concomitant]
  9. OMEPRAZOLE [Concomitant]
  10. BACTRIM DS [Concomitant]
  11. NYSTATIN [Concomitant]
  12. GALENIC /DOCUSATE/SENNA/ (SENNA, DOCUSATE) [Concomitant]
  13. MEDORAL [Concomitant]
  14. ZOLPIDEM [Concomitant]
  15. LIDOBENALOX [Concomitant]
  16. ONDANSETRON HCL [Concomitant]
  17. DIPHENHYDRAMINE HCL [Concomitant]
  18. ACETAMINOPHEN [Concomitant]

REACTIONS (3)
  - DYSPNOEA [None]
  - INFECTION [None]
  - SUBARACHNOID HAEMORRHAGE [None]
